FAERS Safety Report 15606329 (Version 4)
Quarter: 2018Q4

REPORT INFORMATION
  Report Type: Spontaneous
  Country: JP (occurrence: JP)
  Receive Date: 20181112
  Receipt Date: 20181228
  Transmission Date: 20190205
  Serious: Yes (Death, Life-Threatening, Hospitalization, Other)
  Sender: FDA-Public Use
  Company Number: JP-009507513-1809JPN002064J

PATIENT
  Age: 67 Year
  Sex: Male
  Weight: 63 kg

DRUGS (6)
  1. METOCLOPRAMIDE. [Concomitant]
     Active Substance: METOCLOPRAMIDE
     Dosage: 5 MILLIGRAM, INTERNAL USE
     Route: 048
     Dates: start: 20180905, end: 20180918
  2. KEYTRUDA [Suspect]
     Active Substance: PEMBROLIZUMAB
     Indication: SQUAMOUS CELL CARCINOMA OF LUNG
     Dosage: 200 MILLIGRAM, Q3W
     Route: 041
     Dates: start: 20180905, end: 20180905
  3. EQUMET [Concomitant]
     Active Substance: METFORMIN HYDROCHLORIDE\VILDAGLIPTIN
     Dosage: 1 DOSAGE FORM, BID
     Route: 048
     Dates: start: 20180905, end: 20180918
  4. PITAVASTATIN CA KYORIN [Concomitant]
     Dosage: 2 MILLIGRAM, QD
     Route: 048
     Dates: start: 20180905, end: 20180918
  5. MORPHINE HYDROCHLORIDE HYDRATE [Concomitant]
     Active Substance: MORPHINE HYDROCHLORIDE
     Indication: SQUAMOUS CELL CARCINOMA OF LUNG
     Dosage: 5 MILLIGRAM, INTERNAL USE
     Route: 048
     Dates: start: 20180905, end: 20180918
  6. CODEINE PHOSPHATE HYDRATE [Concomitant]
     Active Substance: CODEINE PHOSPHATE
     Indication: SQUAMOUS CELL CARCINOMA OF LUNG
     Dosage: 20 MILLIGRAM, INTERNAL USE
     Route: 048
     Dates: start: 20180905, end: 20180918

REACTIONS (10)
  - Delirium [Fatal]
  - Pyrexia [Unknown]
  - Staphylococcal infection [Not Recovered/Not Resolved]
  - Constipation [Recovering/Resolving]
  - Stevens-Johnson syndrome [Recovering/Resolving]
  - Sepsis [Recovered/Resolved]
  - Malignant neoplasm progression [Fatal]
  - Liver disorder [Not Recovered/Not Resolved]
  - Enterocolitis [Unknown]
  - Respiratory failure [Unknown]

NARRATIVE: CASE EVENT DATE: 20180908
